FAERS Safety Report 7071423-X (Version None)
Quarter: 2010Q4

REPORT INFORMATION
  Report Type: 
  Country: None (occurrence: None)
  Receive Date: 20101029
  Receipt Date: 20091027
  Transmission Date: 20110411
  Serious: No
  Sender: FDA-Public Use
  Company Number: A0801375A

PATIENT
  Age: 66 Year
  Sex: Male

DRUGS (3)
  1. ADVAIR DISKUS 100/50 [Suspect]
     Dosage: 1PUFF TWICE PER DAY
     Route: 055
     Dates: start: 20070101
  2. PROAIR HFA [Concomitant]
  3. UNKNOWN MEDICATION [Concomitant]

REACTIONS (2)
  - IMPAIRED WORK ABILITY [None]
  - PRODUCT QUALITY ISSUE [None]
